FAERS Safety Report 18344609 (Version 1)
Quarter: 2020Q4

REPORT INFORMATION
  Report Type: Spontaneous
  Country: JP (occurrence: JP)
  Receive Date: 20201005
  Receipt Date: 20201005
  Transmission Date: 20210114
  Serious: Yes (Other)
  Sender: FDA-Public Use
  Company Number: JP-APOTEX-2020AP019004

PATIENT
  Age: 71 Year
  Sex: Female

DRUGS (2)
  1. ETIZOLAM [Concomitant]
     Active Substance: ETIZOLAM
     Indication: DEPRESSION
     Dosage: UNK
     Route: 065
  2. PAXIL CR [Suspect]
     Active Substance: PAROXETINE HYDROCHLORIDE
     Indication: DEPRESSION
     Dosage: UNK UNK, QD
     Route: 065

REACTIONS (2)
  - Extremity contracture [Recovered/Resolved]
  - Parkinson^s disease [Unknown]

NARRATIVE: CASE EVENT DATE: 202004
